FAERS Safety Report 4577807-3 (Version None)
Quarter: 2005Q1

REPORT INFORMATION
  Report Type: 
  Country: None (occurrence: None)
  Receive Date: 20050209
  Receipt Date: 20050125
  Transmission Date: 20050727
  Serious: Yes (Hospitalization, Other)
  Sender: FDA-Public Use
  Company Number: US_010565990

PATIENT
  Age: 72 Year
  Sex: Male
  Weight: 84 kg

DRUGS (2)
  1. HUMULIN 70/30 [Suspect]
     Indication: DIABETES MELLITUS
  2. HUMALOG [Suspect]
     Indication: DIABETES MELLITUS
     Dosage: 25 U DAY
     Dates: start: 20030101

REACTIONS (6)
  - ASTHMA [None]
  - BLOOD GLUCOSE INCREASED [None]
  - CEREBROVASCULAR ACCIDENT [None]
  - HYPOACUSIS [None]
  - MEDICAL DEVICE COMPLICATION [None]
  - TREATMENT NONCOMPLIANCE [None]
